FAERS Safety Report 6365284-1 (Version None)
Quarter: 2009Q3

REPORT INFORMATION
  Report Type: 
  Country: None (occurrence: None)
  Receive Date: 20090919
  Receipt Date: 20090812
  Transmission Date: 20100115
  Serious: No
  Sender: FDA-Public Use
  Company Number: US-ABBOTT-09P-163-0591487-00

PATIENT
  Sex: Male
  Weight: 86.26 kg

DRUGS (2)
  1. HUMIRA [Suspect]
     Indication: PSORIASIS
     Dosage: SYRINGE
     Route: 058
  2. HUMIRA [Suspect]
     Dosage: PEN
     Route: 058

REACTIONS (1)
  - DRUG DOSE OMISSION [None]
